FAERS Safety Report 5860817-3 (Version None)
Quarter: 2008Q3

REPORT INFORMATION
  Report Type: 
  Country: None (occurrence: None)
  Receive Date: 20080827
  Receipt Date: 20080122
  Transmission Date: 20090109
  Serious: No
  Sender: FDA-Public Use
  Company Number: US-ABBOTT-07P-163-0427071-00

PATIENT
  Age: 80 Year
  Sex: Female
  Weight: 55.388 kg

DRUGS (1)
  1. NIASPAN [Suspect]
     Indication: HIGH DENSITY LIPOPROTEIN DECREASED
     Route: 048
     Dates: start: 20071201, end: 20071205

REACTIONS (4)
  - CONSTIPATION [None]
  - FLUSHING [None]
  - INSOMNIA [None]
  - PRURITUS [None]
